FAERS Safety Report 9612704 (Version 1)
Quarter: 2013Q4

REPORT INFORMATION
  Report Type: Report from Study
  Country: JP (occurrence: JP)
  Receive Date: 20131010
  Receipt Date: 20131010
  Transmission Date: 20140711
  Serious: Yes (Hospitalization, Other)
  Sender: FDA-Public Use
  Company Number: JP-TAKEDA-TCI2013A05711

PATIENT
  Age: 65 Year
  Sex: Female
  Weight: 67 kg

DRUGS (9)
  1. ALOGLIPTIN [Suspect]
     Indication: TYPE 2 DIABETES MELLITUS
     Dosage: 25 MG, QD
     Route: 048
     Dates: start: 20111222
  2. METFORMIN [Suspect]
  3. ACTOS [Concomitant]
     Indication: TYPE 2 DIABETES MELLITUS
     Route: 048
     Dates: start: 20120716
  4. MEDET [Concomitant]
     Indication: TYPE 2 DIABETES MELLITUS
     Route: 048
  5. GLUFAST [Concomitant]
     Indication: TYPE 2 DIABETES MELLITUS
     Route: 048
     Dates: start: 20120718
  6. ZETIA [Concomitant]
     Route: 048
  7. CALBLOCK [Concomitant]
     Route: 048
  8. NU-LOTAN [Concomitant]
     Route: 048
  9. BEZATOL SR [Concomitant]
     Route: 048
     Dates: start: 20120729

REACTIONS (1)
  - Cerebral infarction [Recovered/Resolved with Sequelae]
